FAERS Safety Report 4627005-X (Version None)
Quarter: 2005Q1

REPORT INFORMATION
  Report Type: 
  Country: None (occurrence: None)
  Receive Date: 20050331
  Receipt Date: 20050323
  Transmission Date: 20050727
  Serious: Yes (Death, Other)
  Sender: FDA-Public Use
  Company Number: 2005049148

PATIENT
  Age: 79 Year
  Sex: Female

DRUGS (2)
  1. FRAGMIN [Suspect]
     Indication: JOINT PROSTHESIS USER
     Dosage: 5000 IU (1 IN 1 D)
  2. ACENOCOUMAROL (ACENOCOUMAROL) [Concomitant]

REACTIONS (3)
  - DRUG INEFFECTIVE [None]
  - POST PROCEDURAL COMPLICATION [None]
  - PULMONARY EMBOLISM [None]
